FAERS Safety Report 7972765-3 (Version None)
Quarter: 2011Q4

REPORT INFORMATION
  Report Type: 
  Country: None (occurrence: None)
  Receive Date: 20111213
  Receipt Date: 20111121
  Transmission Date: 20120403
  Serious: Yes (Life-Threatening, Hospitalization)
  Sender: FDA-Public Use
  Company Number: US-CELGENEUS-163-21660-11113101

PATIENT
  Age: 44 Year
  Sex: Female
  Weight: 119.58 kg

DRUGS (15)
  1. CEFEPIME [Concomitant]
     Route: 065
  2. PEPCID [Concomitant]
     Route: 065
  3. BEVACIZUMAB [Suspect]
     Indication: BREAST CANCER
     Dosage: 10 MILLIGRAM/KILOGRAM
     Route: 041
     Dates: start: 20110324
  4. DIFLUCAN [Concomitant]
     Route: 065
  5. BACITRACIN [Concomitant]
     Route: 065
  6. CYCLOPHOSPHAMIDE [Suspect]
     Indication: BREAST CANCER
     Dosage: 600 MILLIGRAM/KILOGRAM
     Route: 041
     Dates: start: 20110324
  7. DOXORUBICIN HCL [Suspect]
     Indication: BREAST CANCER
     Dosage: 10 MILLIGRAM/KILOGRAM
     Route: 041
     Dates: start: 20110324
  8. MUCINEX [Concomitant]
     Route: 065
  9. TESSALON [Concomitant]
     Route: 065
  10. ABRAXANE [Suspect]
     Indication: BREAST CANCER
     Dosage: 80 MILLIGRAM/KILOGRAM
     Route: 041
     Dates: start: 20110324
  11. PEGFILGRASTIM [Suspect]
     Indication: BREAST CANCER
     Dosage: 6 MILLIGRAM
     Route: 050
     Dates: end: 20110825
  12. AMBIEN [Concomitant]
     Route: 065
  13. TOPROL-XL [Concomitant]
     Route: 065
  14. PROCHLORPERAZINE [Concomitant]
     Route: 065
  15. ACETAMINOPHEN [Concomitant]
     Route: 065

REACTIONS (7)
  - LYMPHATIC DISORDER [None]
  - FEBRILE NEUTROPENIA [None]
  - ANAEMIA [None]
  - CARDIAC DISORDER [None]
  - WHITE BLOOD CELL COUNT DECREASED [None]
  - PLATELET COUNT DECREASED [None]
  - DIARRHOEA [None]
